FAERS Safety Report 11894949 (Version 3)
Quarter: 2016Q2

REPORT INFORMATION
  Report Type: Spontaneous
  Country: FR (occurrence: FR)
  Receive Date: 20160107
  Receipt Date: 20160414
  Transmission Date: 20160815
  Serious: Yes (Other)
  Sender: FDA-Public Use
  Company Number: FR-SA-2015SA217463

PATIENT
  Age: 59 Year
  Sex: Male
  Weight: 61 kg

DRUGS (9)
  1. RENITEC [Concomitant]
     Active Substance: ENALAPRIL MALEATE
     Dosage: ON MORNING AND EVENING
  2. RESIKALI [Concomitant]
     Active Substance: CALCIUM POLYSTYRENE SULFONATE
  3. FABRAZYME [Suspect]
     Active Substance: AGALSIDASE BETA
     Indication: FABRY^S DISEASE
     Route: 041
     Dates: start: 200912
  4. FIXICAL [Concomitant]
     Active Substance: CALCIUM CARBONATE
     Dosage: 500X2 ON MORNING
  5. KARDEGIC [Concomitant]
     Active Substance: ASPIRIN LYSINE
  6. EZETROL [Concomitant]
     Active Substance: EZETIMIBE
  7. AERIUS [Concomitant]
     Active Substance: DESLORATADINE
     Indication: PREMEDICATION
  8. AMLOR [Concomitant]
     Active Substance: AMLODIPINE BESYLATE
     Dosage: ON MORNING
  9. INEXIUM [Concomitant]
     Active Substance: ESOMEPRAZOLE

REACTIONS (14)
  - Blood pressure fluctuation [Not Recovered/Not Resolved]
  - Renal failure [Not Recovered/Not Resolved]
  - Haemoglobin decreased [Unknown]
  - Pallor [Not Recovered/Not Resolved]
  - Tremor [Not Recovered/Not Resolved]
  - Haematocrit decreased [Unknown]
  - Fatigue [Not Recovered/Not Resolved]
  - Feeling cold [Not Recovered/Not Resolved]
  - Malaise [Not Recovered/Not Resolved]
  - Red blood cell count decreased [Unknown]
  - Pain [Not Recovered/Not Resolved]
  - Influenza like illness [Not Recovered/Not Resolved]
  - Headache [Not Recovered/Not Resolved]
  - Chills [Not Recovered/Not Resolved]

NARRATIVE: CASE EVENT DATE: 20151106
